FAERS Safety Report 4453448-3 (Version None)
Quarter: 2004Q3

REPORT INFORMATION
  Report Type: 
  Country: None (occurrence: None)
  Receive Date: 20040920
  Receipt Date: 20040902
  Transmission Date: 20050211
  Serious: Yes (Death, Other)
  Sender: FDA-Public Use
  Company Number: GB-JNJFOC-20040900680

PATIENT
  Age: 54 Year
  Sex: Male

DRUGS (4)
  1. RETINOVA [Suspect]
     Indication: ACUTE MYELOID LEUKAEMIA RECURRENT
     Route: 065
  2. FLUDARABINE PHOSPHATE [Interacting]
     Indication: ACUTE MYELOID LEUKAEMIA RECURRENT
     Route: 065
  3. CYTARABINE [Suspect]
     Indication: ACUTE MYELOID LEUKAEMIA RECURRENT
     Route: 065
  4. VORICONAZOLE [Suspect]
     Route: 065

REACTIONS (17)
  - ALVEOLAR PROTEINOSIS [None]
  - AREFLEXIA [None]
  - CARDIAC TAMPONADE [None]
  - CHEST X-RAY ABNORMAL [None]
  - DRUG INTERACTION [None]
  - DRUG TOXICITY [None]
  - DYSPNOEA [None]
  - FUNGAL INFECTION [None]
  - MALAISE [None]
  - MUSCULAR WEAKNESS [None]
  - NEUROLOGICAL SYMPTOM [None]
  - NEUROPATHY PERIPHERAL [None]
  - PARAINFLUENZAE VIRUS INFECTION [None]
  - PERICARDITIS [None]
  - PLEURAL EFFUSION [None]
  - PULMONARY MYCOSIS [None]
  - PYREXIA [None]
